FAERS Safety Report 8540792-3 (Version None)
Quarter: 2012Q3

REPORT INFORMATION
  Report Type: 
  Country: None (occurrence: None)
  Receive Date: 20120726
  Receipt Date: 20120712
  Transmission Date: 20120928
  Serious: No
  Sender: FDA-Public Use
  Company Number: US-ASTRAZENECA-2012SE48767

PATIENT
  Age: 82 Year
  Sex: Female
  Weight: 59 kg

DRUGS (7)
  1. NEXIUM [Suspect]
     Indication: CROHN'S DISEASE
     Route: 048
  2. OMEGA FISH OIL [Concomitant]
  3. VITAMIN D SUPPLEMENTS [Concomitant]
     Indication: VITAMIN D DEFICIENCY
  4. EYE DROPS [Concomitant]
     Indication: GLAUCOMA
  5. ASPIRIN [Concomitant]
     Indication: CARDIAC DISORDER
  6. VITAMIN TAB [Concomitant]
  7. LIALDA [Concomitant]
     Indication: CROHN'S DISEASE

REACTIONS (2)
  - UPPER-AIRWAY COUGH SYNDROME [None]
  - OFF LABEL USE [None]
